FAERS Safety Report 4920575-3 (Version None)
Quarter: 2006Q1

REPORT INFORMATION
  Report Type: 
  Country: None (occurrence: None)
  Receive Date: 20060217
  Receipt Date: 20060206
  Transmission Date: 20060701
  Serious: Yes (Hospitalization)
  Sender: FDA-Public Use
  Company Number: 2006017701

PATIENT
  Age: 68 Year
  Sex: Male

DRUGS (11)
  1. CABERGOLINE [Suspect]
     Indication: PARKINSON'S DISEASE
     Dosage: 8 MG (1 D), ORAL
     Route: 048
     Dates: start: 19990101, end: 20050201
  2. ARICEPT [Concomitant]
  3. EMCONCOR (BISOPROLOL) [Concomitant]
  4. MADOPARK (BENSERAZIDE HYDROCHLORIDE, LEVODOPA) [Concomitant]
  5. MADOPARK - SLOW RELEASE (BENSERAZIDE HYDROCHLORIDE, LEVODOPA) [Concomitant]
  6. MADOPARK  QUICK (BENSERAZIDE HYDROCHLORIDE, LEVODOPA) [Concomitant]
  7. EXELON [Concomitant]
  8. EDRONAX [Concomitant]
  9. CITALOPRAM HYDROBROMIDE [Concomitant]
  10. LITAREX (LITHIUM CITRATE) [Concomitant]
  11. MIANSERIN (MIANSERIN) [Concomitant]

REACTIONS (11)
  - ATRIAL FIBRILLATION [None]
  - CARDIAC FAILURE [None]
  - DEMENTIA [None]
  - DILATATION ATRIAL [None]
  - HALLUCINATION [None]
  - HYPOTENSION [None]
  - MITRAL VALVE INCOMPETENCE [None]
  - ORTHOSTATIC HYPOTENSION [None]
  - PULMONARY ARTERIAL PRESSURE INCREASED [None]
  - SYNCOPE [None]
  - TRICUSPID VALVE INCOMPETENCE [None]
